FAERS Safety Report 10191684 (Version 1)
Quarter: 2014Q2

REPORT INFORMATION
  Report Type: Spontaneous
  Country: JP (occurrence: None)
  Receive Date: 20140521
  Receipt Date: 20140521
  Transmission Date: 20141212
  Serious: Yes (Death)
  Sender: FDA-Public Use
  Company Number: KAD201405-000510

PATIENT
  Age: 47 Year
  Sex: Female

DRUGS (5)
  1. RIBAVIRIN [Suspect]
     Indication: HEPATITIS CHOLESTATIC
  2. PEGYLATED INTERFERON ALFA-2B [Suspect]
     Indication: HEPATITIS CHOLESTATIC
  3. CYCLOSPORINE [Suspect]
     Indication: IMMUNOSUPPRESSION
  4. METHYLPREDNISOLONE [Suspect]
     Indication: IMMUNOSUPPRESSION
  5. BASILIXIMAB [Suspect]
     Indication: IMMUNOSUPPRESSION

REACTIONS (5)
  - Therapeutic response decreased [None]
  - Transplant dysfunction [None]
  - Hepatic failure [None]
  - Cytomegalovirus infection [None]
  - Pneumonitis [None]
